FAERS Safety Report 18780207 (Version 1)
Quarter: 2021Q1

REPORT INFORMATION
  Report Type: Spontaneous
  Country: US (occurrence: US)
  Receive Date: 20210124
  Receipt Date: 20210124
  Transmission Date: 20210419
  Serious: Yes (Life-Threatening, Hospitalization)
  Sender: FDA-Public Use
  Company Number: None

PATIENT
  Age: 66 Year
  Sex: Male
  Weight: 119 kg

DRUGS (2)
  1. CIPROFLOXACIN 500MG BID [Concomitant]
     Dates: start: 20210111, end: 20210121
  2. BAMLANIVIMAB. [Suspect]
     Active Substance: BAMLANIVIMAB
     Indication: COVID-19
     Dosage: ?          OTHER FREQUENCY:ONCE;?
     Route: 042
     Dates: start: 20210119, end: 20210119

REACTIONS (8)
  - Blood urea increased [None]
  - Blood creatinine increased [None]
  - Dyspnoea [None]
  - Acute kidney injury [None]
  - Nephritis [None]
  - Dialysis [None]
  - Pancreatitis [None]
  - Azotaemia [None]

NARRATIVE: CASE EVENT DATE: 20210124
